FAERS Safety Report 6072647-0 (Version None)
Quarter: 2009Q1

REPORT INFORMATION
  Report Type: 
  Country: None (occurrence: None)
  Receive Date: 20090210
  Receipt Date: 20090204
  Transmission Date: 20090719
  Serious: Yes (Other)
  Sender: FDA-Public Use
  Company Number: GR-PFIZER INC-2009165944

PATIENT

DRUGS (1)
  1. CELEBREX [Suspect]
     Route: 048
     Dates: start: 20070101

REACTIONS (1)
  - HAEMATOMA [None]
